FAERS Safety Report 7445264-5 (Version None)
Quarter: 2011Q2

REPORT INFORMATION
  Report Type: 
  Country: None (occurrence: None)
  Receive Date: 20110429
  Receipt Date: 20110331
  Transmission Date: 20111010
  Serious: Yes (Hospitalization, Other)
  Sender: FDA-Public Use
  Company Number: US-BAYER-201027028NA

PATIENT
  Age: 31 Year
  Sex: Female
  Weight: 108.84 kg

DRUGS (4)
  1. OCELLA [Suspect]
     Indication: VAGINAL HAEMORRHAGE
     Route: 048
  2. YASMIN [Suspect]
     Indication: PRODUCT USED FOR UNKNOWN INDICATION
     Route: 048
  3. ARIXTRA [Concomitant]
     Dosage: 10 MG, QD
  4. YAZ [Suspect]
     Indication: VAGINAL HAEMORRHAGE
     Route: 048

REACTIONS (1)
  - PULMONARY EMBOLISM [None]
